FAERS Safety Report 7276606-1 (Version None)
Quarter: 2011Q1

REPORT INFORMATION
  Report Type: 
  Country: None (occurrence: None)
  Receive Date: 20110204
  Receipt Date: 20110131
  Transmission Date: 20110831
  Serious: Yes (Life-Threatening)
  Sender: FDA-Public Use
  Company Number: DE-ASTRAZENECA-2011SE05373

PATIENT
  Age: 65 Year
  Sex: Female
  Weight: 43 kg

DRUGS (3)
  1. ARICEPT [Concomitant]
     Indication: DEMENTIA ALZHEIMER'S TYPE
     Dosage: 5MGM
     Route: 048
  2. SEROQUEL [Suspect]
     Indication: RESTLESSNESS
     Dosage: 25 MGM ONCE
     Route: 048
  3. AXURA [Concomitant]
     Indication: DEMENTIA ALZHEIMER'S TYPE
     Dosage: 5MGM
     Route: 048

REACTIONS (3)
  - LOSS OF CONSCIOUSNESS [None]
  - BLOOD PRESSURE IMMEASURABLE [None]
  - CIRCULATORY COLLAPSE [None]
